FAERS Safety Report 13524434 (Version 1)
Quarter: 2017Q2

REPORT INFORMATION
  Report Type: Spontaneous
  Country: US (occurrence: US)
  Receive Date: 20170508
  Receipt Date: 20170508
  Transmission Date: 20170830
  Serious: No
  Sender: FDA-Public Use
  Company Number: US-BAYER-2017-081914

PATIENT
  Sex: Female

DRUGS (1)
  1. ACARBOSE. [Suspect]
     Active Substance: ACARBOSE
     Indication: HYPOGLYCAEMIA

REACTIONS (2)
  - Drug ineffective for unapproved indication [None]
  - Off label use [None]
